FAERS Safety Report 10956493 (Version 1)
Quarter: 2015Q1

REPORT INFORMATION
  Report Type: Spontaneous
  Country: KR (occurrence: KR)
  Receive Date: 20150326
  Receipt Date: 20150326
  Transmission Date: 20150721
  Serious: Yes (Hospitalization)
  Sender: FDA-Public Use
  Company Number: KR-SA-2015SA034283

PATIENT
  Age: 40 Year
  Sex: Female
  Weight: 36.5 kg

DRUGS (1)
  1. MYOZYME [Suspect]
     Active Substance: ALGLUCOSIDASE ALFA
     Indication: GLYCOGEN STORAGE DISEASE TYPE II
     Route: 042

REACTIONS (5)
  - Dyspepsia [Unknown]
  - Vomiting [Unknown]
  - Cold sweat [Unknown]
  - Hypoglycaemia [Unknown]
  - Hypophagia [Unknown]

NARRATIVE: CASE EVENT DATE: 201503
